FAERS Safety Report 5626903-8 (Version None)
Quarter: 2008Q1

REPORT INFORMATION
  Report Type: 
  Country: None (occurrence: None)
  Receive Date: 20080212
  Receipt Date: 20080128
  Transmission Date: 20080703
  Serious: Yes (Other)
  Sender: FDA-Public Use
  Company Number: GXKR2007NL09442

PATIENT
  Age: 46 Year
  Sex: Female
  Weight: 75.5 kg

DRUGS (7)
  1. METOPROLOL SANDOZ (NGX)(METOPROLOL) UNKNOWN, 100MG [Suspect]
     Indication: MIGRAINE PROPHYLAXIS
     Dosage: 50 MG, QD, ORAL
     Route: 048
     Dates: start: 20070918, end: 20071003
  2. ASACOL [Concomitant]
  3. CETIRIZINE HCL [Concomitant]
  4. YASMIN [Concomitant]
  5. PARACETAMOL + CODEINE (CODEINE, PARACETAMOL) [Concomitant]
  6. OXAZEPAM [Concomitant]
  7. SERETIDE DISKUS (FLUTICASONE PROPIONATE, SALMETEROL XINAFOATE) [Concomitant]

REACTIONS (8)
  - ANXIETY [None]
  - DEPERSONALISATION [None]
  - DEREALISATION [None]
  - DISTURBANCE IN ATTENTION [None]
  - EMOTIONAL DISORDER [None]
  - NIGHTMARE [None]
  - PSYCHOTIC DISORDER [None]
  - TINNITUS [None]
